FAERS Safety Report 20120315 (Version 30)
Quarter: 2023Q2

REPORT INFORMATION
  Report Type: Report from Study
  Country: FR (occurrence: None)
  Receive Date: 20211126
  Receipt Date: 20230627
  Transmission Date: 20230722
  Serious: Yes (Life-Threatening, Hospitalization)
  Sender: FDA-Public Use
  Company Number: FR-Eisai Medical Research-EC-2021-103980

PATIENT
  Age: 54 Year
  Sex: Female
  Weight: 69 kg

DRUGS (15)
  1. LENVATINIB [Suspect]
     Active Substance: LENVATINIB
     Indication: Oesophageal adenocarcinoma
     Route: 048
     Dates: start: 20210913, end: 20211123
  2. LENVATINIB [Suspect]
     Active Substance: LENVATINIB
     Indication: Adenocarcinoma gastric
  3. PEMBROLIZUMAB [Suspect]
     Active Substance: PEMBROLIZUMAB
     Indication: Oesophageal adenocarcinoma
     Route: 041
     Dates: start: 20210913, end: 20210913
  4. PEMBROLIZUMAB [Suspect]
     Active Substance: PEMBROLIZUMAB
     Indication: Adenocarcinoma gastric
     Route: 041
     Dates: start: 20211025, end: 20211025
  5. PEMBROLIZUMAB [Suspect]
     Active Substance: PEMBROLIZUMAB
     Route: 041
     Dates: start: 20211209, end: 20211209
  6. CAPECITABINE [Suspect]
     Active Substance: CAPECITABINE
     Indication: Oesophageal adenocarcinoma
     Dosage: BID FOR 14 DAYS EVERY 3 WEEKS
     Route: 048
     Dates: start: 20210913, end: 20211018
  7. CAPECITABINE [Suspect]
     Active Substance: CAPECITABINE
     Indication: Adenocarcinoma gastric
     Dosage: BID FOR 14 DAYS EVERY 3 WEEKS
     Route: 048
     Dates: start: 20211025, end: 20211123
  8. OXALIPLATIN [Suspect]
     Active Substance: OXALIPLATIN
     Indication: Oesophageal adenocarcinoma
     Route: 042
     Dates: start: 20210913, end: 20211004
  9. OXALIPLATIN [Suspect]
     Active Substance: OXALIPLATIN
     Indication: Adenocarcinoma gastric
     Route: 042
     Dates: start: 20211025, end: 20211115
  10. CHLORMADINONE ACETATE [Concomitant]
     Active Substance: CHLORMADINONE ACETATE
     Dates: start: 201501
  11. LOXAPINE [Concomitant]
     Active Substance: LOXAPINE
     Dates: start: 200501
  12. ATARAX [Concomitant]
     Active Substance: HYDROXYZINE HYDROCHLORIDE
     Dates: start: 20040101
  13. ZYPREXA [Concomitant]
     Active Substance: OLANZAPINE
     Dates: start: 200501
  14. LANSOPRAZOLE [Concomitant]
     Active Substance: LANSOPRAZOLE
     Dates: start: 200501
  15. DAFALGAN [Concomitant]
     Active Substance: ACETAMINOPHEN
     Dates: start: 20210913

REACTIONS (2)
  - Cardiac failure [Not Recovered/Not Resolved]
  - Dyspnoea exertional [Not Recovered/Not Resolved]

NARRATIVE: CASE EVENT DATE: 20211018
